FAERS Safety Report 13701816 (Version 1)
Quarter: 2020Q3

REPORT INFORMATION
  Report Type: Report from Study
  Country: CA (occurrence: CA)
  Receive Date: 20170629
  Receipt Date: 20170629
  Transmission Date: 20201105
  Serious: Yes (Hospitalization)
  Sender: FDA-Public Use
  Company Number: CA-PFIZER INC-2017230223

PATIENT
  Age: 48 Year
  Sex: Female

DRUGS (18)
  1. PEMETREXED. [Suspect]
     Active Substance: PEMETREXED
     Indication: NON-SMALL CELL LUNG CANCER METASTATIC
     Dosage: 987.5 MG (21 DAYS CYCLE)
     Route: 042
     Dates: start: 20170131
  2. HYDROMORPH CONTIN [Concomitant]
     Active Substance: HYDROMORPHONE
     Dosage: UNK
     Route: 065
     Dates: start: 20161223
  3. VITAMIN B12 [Concomitant]
     Active Substance: CYANOCOBALAMIN
     Dosage: UNK
     Route: 065
     Dates: start: 20170105
  4. OLANZAPINE. [Concomitant]
     Active Substance: OLANZAPINE
     Dosage: UNK
     Route: 065
     Dates: start: 20170320
  5. DOMPERIDONE [Concomitant]
     Active Substance: DOMPERIDONE
     Dosage: UNK
     Route: 065
     Dates: start: 20170418
  6. PREDNISONE. [Concomitant]
     Active Substance: PREDNISONE
     Dosage: 60 MG, 2X/DAY
     Route: 065
     Dates: start: 20170324
  7. BACLOFEN. [Concomitant]
     Active Substance: BACLOFEN
     Dosage: UNK
     Route: 065
     Dates: start: 20161223
  8. HALDOL [Concomitant]
     Active Substance: HALOPERIDOL
     Dosage: UNK
     Route: 065
     Dates: start: 20170508
  9. HYDROMORPHONE [Concomitant]
     Active Substance: HYDROMORPHONE
     Dosage: UNK
     Route: 065
     Dates: start: 20161223
  10. FOLIC ACID. [Concomitant]
     Active Substance: FOLIC ACID
     Dosage: UNK
     Route: 065
     Dates: start: 20170105
  11. TREMELIMUMAB. [Suspect]
     Active Substance: TREMELIMUMAB
     Indication: NON-SMALL CELL LUNG CANCER METASTATIC
     Dosage: 75 MG (21 DAYS CYCLE)
     Route: 042
     Dates: start: 20170131
  12. CISPLATIN. [Suspect]
     Active Substance: CISPLATIN
     Indication: NON-SMALL CELL LUNG CANCER METASTATIC
     Dosage: 148 MG (21 DAYS CYCLE)
     Route: 042
     Dates: start: 20170131
  13. RESTORALAX [Concomitant]
     Active Substance: POLYETHYLENE GLYCOL 3350
     Dosage: UNK
     Route: 065
     Dates: start: 201610
  14. PREDNISONE. [Concomitant]
     Active Substance: PREDNISONE
     Dosage: 60 MG, 1X/DAY
     Route: 065
     Dates: start: 20170205
  15. DURVALUMAB. [Suspect]
     Active Substance: DURVALUMAB
     Indication: NON-SMALL CELL LUNG CANCER METASTATIC
     Dosage: 1125 MG (21 DAYS CYCLE)
     Route: 042
     Dates: start: 20170131
  16. CARBOPLATIN. [Suspect]
     Active Substance: CARBOPLATIN
     Indication: NON-SMALL CELL LUNG CANCER METASTATIC
     Dosage: 6 AUC (21 DAYS CYCLE)
     Route: 042
     Dates: start: 20170131
  17. PREGABALIN. [Concomitant]
     Active Substance: PREGABALIN
     Dosage: UNK
     Route: 065
     Dates: start: 201609
  18. CESAMET [Concomitant]
     Active Substance: NABILONE
     Dosage: UNK
     Route: 065
     Dates: start: 20170509

REACTIONS (4)
  - Diarrhoea [Unknown]
  - Febrile neutropenia [Unknown]
  - Platelet count decreased [Recovered/Resolved]
  - Colitis [Unknown]

NARRATIVE: CASE EVENT DATE: 20170515
